FAERS Safety Report 4452284-1 (Version None)
Quarter: 2004Q3

REPORT INFORMATION
  Report Type: 
  Country: None (occurrence: None)
  Receive Date: 20040917
  Receipt Date: 20031010
  Transmission Date: 20050211
  Serious: Yes (Hospitalization)
  Sender: FDA-Public Use
  Company Number: PHHO2003US12867

PATIENT
  Age: 42 Year
  Sex: Female

DRUGS (2)
  1. NEORAL [Suspect]
     Indication: RENAL TRANSPLANT
     Dosage: 150 MG, BID
     Route: 048
     Dates: start: 20030312
  2. ERL080 [Suspect]
     Indication: RENAL TRANSPLANT
     Dosage: 1440 MG,
     Route: 048
     Dates: start: 20030311

REACTIONS (7)
  - BIOPSY KIDNEY ABNORMAL [None]
  - KIDNEY TRANSPLANT REJECTION [None]
  - NEPHRITIS INTERSTITIAL [None]
  - OEDEMA [None]
  - PROTEINURIA [None]
  - THROMBOTIC MICROANGIOPATHY [None]
  - TUBULOINTERSTITIAL NEPHRITIS [None]
